FAERS Safety Report 7925506 (Version 4)
Quarter: 2012Q4

REPORT INFORMATION
  Report Type: 
  Country: US (occurrence: US)
  Receive Date: 20110502
  Receipt Date: 20120905
  Transmission Date: 20130627
  Serious: No
  Sender: FDA-Public Use
  Company Number: US-ASTRAZENECA-2010SE41617

PATIENT
  Age: 47 Year
  Sex: Female

DRUGS (4)
  1. SYMBICORT PMDI [Suspect]
     Dosage: 80/4.5 MCG, FREQUENCY UNKNOWN
     Route: 055
  2. NEXIUM [Suspect]
     Route: 048
  3. NEXIUM [Suspect]
     Route: 048
  4. OMEPRAZOLE [Suspect]
     Route: 065

REACTIONS (8)
  - Cardiac disorder [Unknown]
  - Aphagia [Unknown]
  - Regurgitation [Unknown]
  - Gastrooesophageal reflux disease [Unknown]
  - Vomiting [Unknown]
  - Drug dose omission [Unknown]
  - Drug effect decreased [Unknown]
  - Drug ineffective [Unknown]
